FAERS Safety Report 24097025 (Version 1)
Quarter: 2024Q3

REPORT INFORMATION
  Report Type: Spontaneous
  Country: US (occurrence: US)
  Receive Date: 20240716
  Receipt Date: 20240716
  Transmission Date: 20241017
  Serious: No
  Sender: GRIFOLS
  Company Number: US-IGSA-BIG0028895

PATIENT
  Sex: Female
  Weight: 72 kg

DRUGS (2)
  1. GAMUNEX-C [Suspect]
     Active Substance: HUMAN IMMUNOGLOBULIN G
     Indication: Immunodeficiency
     Dosage: 60 GRAM, Q.4WK.
     Route: 042
     Dates: start: 20240405
  2. GAMUNEX-C [Suspect]
     Active Substance: HUMAN IMMUNOGLOBULIN G
     Dosage: 60 GRAM, Q.4WK.
     Route: 042
     Dates: start: 20240406

REACTIONS (4)
  - Eye pain [Recovered/Resolved]
  - Nausea [Recovered/Resolved]
  - Food intolerance [Recovered/Resolved]
  - Vomiting [Recovered/Resolved]
